FAERS Safety Report 4729724-3 (Version None)
Quarter: 2005Q3

REPORT INFORMATION
  Report Type: 
  Country: None (occurrence: None)
  Receive Date: 20050728
  Receipt Date: 20050715
  Transmission Date: 20060218
  Serious: Yes (Other)
  Sender: FDA-Public Use
  Company Number: 2004077855

PATIENT
  Age: 14 Year
  Sex: Female

DRUGS (16)
  1. NEURONTIN [Suspect]
     Indication: BIPOLAR DISORDER
     Dosage: 300 MG ORAL
     Route: 048
     Dates: start: 20020808, end: 20021119
  2. LEVOTHROID [Concomitant]
  3. CLINDAMYCIN [Concomitant]
  4. SEROQUEL [Concomitant]
  5. LITHIUM [Concomitant]
  6. MULTI-VITAMINS [Concomitant]
  7. PAXIL [Concomitant]
  8. CLOZARIL [Concomitant]
  9. ATIVAN [Concomitant]
  10. COLACE (DOCUSATE SODIUM) [Concomitant]
  11. PROVIGIL [Concomitant]
  12. TOPAMAX [Concomitant]
  13. NALTREXONE [Concomitant]
  14. DEPO-PROVERA 150 (MEDROXYPROGESTERONE ACETATE) [Concomitant]
  15. ALBUTEROL [Concomitant]
  16. ALL OTHER THERAPEUTIC PRODUCTS [Concomitant]

REACTIONS (14)
  - ABNORMAL BEHAVIOUR [None]
  - AGGRESSION [None]
  - COMA [None]
  - CONCUSSION [None]
  - DRUG ABUSER [None]
  - DRUG INEFFECTIVE [None]
  - DYSARTHRIA [None]
  - FEELING DRUNK [None]
  - GAIT DISTURBANCE [None]
  - LOSS OF CONSCIOUSNESS [None]
  - PAIN [None]
  - PERSONALITY CHANGE [None]
  - POLYTRAUMATISM [None]
  - SUICIDE ATTEMPT [None]
